FAERS Safety Report 10527397 (Version 1)
Quarter: 2014Q4

REPORT INFORMATION
  Report Type: Spontaneous
  Country: US (occurrence: None)
  Receive Date: 20141017
  Receipt Date: 20141017
  Transmission Date: 20150528
  Serious: Yes (Hospitalization)
  Sender: FDA-Public Use
  Company Number: None

PATIENT
  Age: 60 Year
  Sex: Female
  Weight: 95.3 kg

DRUGS (2)
  1. TAXOL [Suspect]
     Active Substance: PACLITAXEL
  2. CARBOPLATIN. [Suspect]
     Active Substance: CARBOPLATIN

REACTIONS (7)
  - Gait disturbance [None]
  - Anaemia [None]
  - Malaise [None]
  - Blood creatinine increased [None]
  - Pyrexia [None]
  - Hyponatraemia [None]
  - Pyelonephritis [None]

NARRATIVE: CASE EVENT DATE: 20141008
